FAERS Safety Report 6325837 (Version 4)
Quarter: 2017Q3

REPORT INFORMATION
  Report Type: Spontaneous
  Country: US (occurrence: US)
  Receive Date: 20061114
  Receipt Date: 20170927
  Transmission Date: 20171128
  Serious: Yes (Hospitalization, Other)
  Sender: FDA-Public Use
  Company Number: US-PFIZER INC-2006136728

PATIENT
  Age: 55 Year
  Sex: Male
  Weight: 116 kg

DRUGS (2)
  1. CELEBREX [Suspect]
     Active Substance: CELECOXIB
     Indication: BACK PAIN
     Dosage: 200 MG, 2X/DAY
     Dates: start: 20010514, end: 20020409
  2. BEXTRA [Suspect]
     Active Substance: VALDECOXIB
     Indication: BACK PAIN
     Dosage: 10 MG, 2X/DAY
     Dates: start: 20020409

REACTIONS (2)
  - Ischaemic stroke [Unknown]
  - Cerebral artery occlusion [Unknown]

NARRATIVE: CASE EVENT DATE: 20040816
